FAERS Safety Report 11731600 (Version 1)
Quarter: 2015Q4

REPORT INFORMATION
  Report Type: Spontaneous
  Country: US (occurrence: US)
  Receive Date: 20151110
  Receipt Date: 20151110
  Transmission Date: 20160304
  Serious: No
  Sender: FDA-Public Use
  Company Number: US-ELI_LILLY_AND_COMPANY-US201112002855

PATIENT
  Age: 76 Year
  Sex: Female

DRUGS (4)
  1. FORTEO [Suspect]
     Active Substance: TERIPARATIDE
     Indication: OSTEOPOROSIS
     Dosage: 20 UG, QD
     Route: 065
     Dates: start: 20111123, end: 20111201
  2. HYDROXYCHLOROQUINE [Concomitant]
     Active Substance: HYDROXYCHLOROQUINE
  3. WARFARIN [Concomitant]
     Active Substance: WARFARIN
  4. LEFLUNOMIDE. [Concomitant]
     Active Substance: LEFLUNOMIDE
     Indication: ARTHRITIS

REACTIONS (12)
  - Thyroid disorder [Unknown]
  - Throat irritation [Unknown]
  - Pruritus generalised [Not Recovered/Not Resolved]
  - Generalised erythema [Not Recovered/Not Resolved]
  - Hypersensitivity [Unknown]
  - Rash [Not Recovered/Not Resolved]
  - Cough [Unknown]
  - Motor dysfunction [Unknown]
  - Skin exfoliation [Not Recovered/Not Resolved]
  - Joint stiffness [Unknown]
  - Adverse reaction [Unknown]
  - Rash [Recovering/Resolving]

NARRATIVE: CASE EVENT DATE: 2011
